FAERS Safety Report 5134782-0 (Version None)
Quarter: 2006Q4

REPORT INFORMATION
  Report Type: 
  Country: None (occurrence: None)
  Receive Date: 20061025
  Receipt Date: 20061013
  Transmission Date: 20070319
  Serious: Yes (Hospitalization)
  Sender: FDA-Public Use
  Company Number: BR-ROCHE-467541

PATIENT
  Sex: Male

DRUGS (6)
  1. RIVOTRIL [Suspect]
     Indication: DEPRESSION
     Dosage: INDICATION REPORTED AS DEPRESSION AND ANGUISH.
     Route: 048
     Dates: start: 20010615
  2. RIVOTRIL [Suspect]
     Route: 048
  3. RIVOTRIL [Suspect]
     Route: 048
     Dates: start: 20061017, end: 20061017
  4. RIVOTRIL [Suspect]
     Route: 048
  5. VENLAFAXIINE HCL [Concomitant]
     Indication: DEPRESSION
     Route: 048
  6. CARBAMAZEPINE [Concomitant]
     Indication: DEPRESSION
     Route: 048

REACTIONS (9)
  - BLOOD PRESSURE INCREASED [None]
  - CONFUSIONAL STATE [None]
  - DRUG TOLERANCE [None]
  - DRUG WITHDRAWAL SYNDROME [None]
  - MEMORY IMPAIRMENT [None]
  - OVERDOSE [None]
  - SOMNOLENCE [None]
  - SUICIDE ATTEMPT [None]
  - WEIGHT INCREASED [None]
